FAERS Safety Report 5824495-1 (Version None)
Quarter: 2008Q3

REPORT INFORMATION
  Report Type: 
  Country: None (occurrence: None)
  Receive Date: 20080728
  Receipt Date: 20080715
  Transmission Date: 20090109
  Serious: Yes (Hospitalization, Other)
  Sender: FDA-Public Use
  Company Number: US-BAYER-200824845NA

PATIENT
  Age: 33 Year
  Sex: Female
  Weight: 59 kg

DRUGS (9)
  1. BETASERON [Suspect]
     Indication: RELAPSING-REMITTING MULTIPLE SCLEROSIS
     Route: 058
     Dates: start: 20000501
  2. WELLBUTRIN [Concomitant]
  3. ALLEGRA [Concomitant]
  4. NEURONTIN [Concomitant]
  5. NASONEX [Concomitant]
  6. ASPIRIN [Concomitant]
  7. VALTREX [Concomitant]
     Indication: HERPES ZOSTER
  8. LEXAPRO [Concomitant]
  9. MULTI-VITAMIN [Concomitant]

REACTIONS (1)
  - COLON CANCER STAGE III [None]
